FAERS Safety Report 18208359 (Version 1)
Quarter: 2020Q3

REPORT INFORMATION
  Report Type: Spontaneous
  Country: US (occurrence: US)
  Receive Date: 20200827
  Receipt Date: 20200827
  Transmission Date: 20201103
  Serious: Yes (Life-Threatening, Hospitalization)
  Sender: FDA-Public Use
  Company Number: None

PATIENT
  Age: 75 Year
  Sex: Male
  Weight: 92.25 kg

DRUGS (2)
  1. IRON DEXTRAN [Suspect]
     Active Substance: IRON DEXTRAN
     Indication: IRON DEFICIENCY
     Dosage: ?          OTHER FREQUENCY:SINGLE DOSE;?
     Route: 042
     Dates: start: 20200708, end: 20200708
  2. NITROGLYCERIN TABLETS [Concomitant]
     Dates: start: 20120912

REACTIONS (1)
  - Apparent life threatening event [None]

NARRATIVE: CASE EVENT DATE: 20200708
